FAERS Safety Report 6003064-7 (Version None)
Quarter: 2008Q4

REPORT INFORMATION
  Report Type: 
  Country: None (occurrence: None)
  Receive Date: 20081215
  Receipt Date: 20081204
  Transmission Date: 20090506
  Serious: Yes (Hospitalization)
  Sender: FDA-Public Use
  Company Number: GB-RANBAXY-2008RR-19792

PATIENT
  Age: 18 Year
  Sex: Male

DRUGS (2)
  1. MINOCYCLINE HCL [Suspect]
     Indication: ACNE
     Dosage: 100 MG, QD
  2. PENICILLIN [Concomitant]

REACTIONS (3)
  - AUTOIMMUNE HEPATITIS [None]
  - NEUTROPENIA [None]
  - SYSTEMIC LUPUS ERYTHEMATOSUS [None]
